FAERS Safety Report 21018470 (Version 1)
Quarter: 2022Q2

REPORT INFORMATION
  Report Type: Spontaneous
  Country: CN (occurrence: CN)
  Receive Date: 20220628
  Receipt Date: 20220628
  Transmission Date: 20220721
  Serious: Yes (Hospitalization)
  Sender: FDA-Public Use
  Company Number: None

PATIENT
  Age: 48 Year
  Sex: Female
  Weight: 56 kg

DRUGS (6)
  1. CYCLOPHOSPHAMIDE [Suspect]
     Active Substance: CYCLOPHOSPHAMIDE
     Indication: Breast cancer stage II
     Dosage: 940 MG, QD,(DOSAGE FORM: INJECTION), CYCLOPHOSPHAMIDE 940 MG DILUTED 0.9% SODIUM CHLORIDE 100ML
     Route: 041
     Dates: start: 20220606, end: 20220606
  2. CYCLOPHOSPHAMIDE [Suspect]
     Active Substance: CYCLOPHOSPHAMIDE
     Indication: Hormone receptor positive breast cancer
  3. SODIUM CHLORIDE [Suspect]
     Active Substance: SODIUM CHLORIDE
     Indication: Medication dilution
     Dosage: 100 ML, QD, ONCE TIME (DOSADE FORM: INJECTION), CYCLOPHOSPHAMIDE 940 MG + 0.9% SODIUM CHLORIDE 100ML
     Route: 041
     Dates: start: 20220606, end: 20220606
  4. ANHYDROUS DEXTROSE [Suspect]
     Active Substance: ANHYDROUS DEXTROSE
     Indication: Medication dilution
     Dosage: 250 ML, QD ONCE TIME, PIRARUBICIN HYDROCHLORIDE 78 MG DILUTED WITH 5% GLUCOSE 250ML
     Route: 041
     Dates: start: 20220606, end: 20220606
  5. PIRARUBICIN HYDROCHLORIDE [Suspect]
     Active Substance: PIRARUBICIN HYDROCHLORIDE
     Indication: Breast cancer stage II
     Dosage: 78 MG, QD ONCE TIME, PIRARUBICIN HYDROCHLORIDE 78 MG DILUTED WITH 5% GLUCOSE 250ML
     Route: 041
     Dates: start: 20220606, end: 20220606
  6. PIRARUBICIN HYDROCHLORIDE [Suspect]
     Active Substance: PIRARUBICIN HYDROCHLORIDE
     Indication: Hormone receptor positive breast cancer

REACTIONS (2)
  - White blood cell count decreased [Recovering/Resolving]
  - Neutrophil count decreased [Recovering/Resolving]

NARRATIVE: CASE EVENT DATE: 20220619
